FAERS Safety Report 5732053-2 (Version None)
Quarter: 2008Q2

REPORT INFORMATION
  Report Type: 
  Country: None (occurrence: None)
  Receive Date: 20080506
  Receipt Date: 20080424
  Transmission Date: 20081010
  Serious: Yes (Other)
  Sender: FDA-Public Use
  Company Number: AMAG-2008-0001

PATIENT
  Age: 45 Year
  Sex: Female

DRUGS (3)
  1. MAGNEVIST [Suspect]
     Indication: NUCLEAR MAGNETIC RESONANCE IMAGING
     Dosage: 15 ML (7035 MG), IV
     Route: 042
     Dates: start: 20070815
  2. LUMIREM (FERUMOXSIL) [Suspect]
     Indication: NUCLEAR MAGNETIC RESONANCE IMAGING
     Dosage: UNKNOWN SINGLE DOSE, PO
     Route: 048
     Dates: start: 20070815
  3. HYOSCINE HBR HYT [Concomitant]

REACTIONS (7)
  - ANGIOEDEMA [None]
  - CONDITION AGGRAVATED [None]
  - DRUG HYPERSENSITIVITY [None]
  - ERYTHEMA [None]
  - FOOD ALLERGY [None]
  - SKIN REACTION [None]
  - URTICARIA [None]
